FAERS Safety Report 20235192 (Version 3)
Quarter: 2022Q2

REPORT INFORMATION
  Report Type: Spontaneous
  Country: US (occurrence: None)
  Receive Date: 20211228
  Receipt Date: 20220609
  Transmission Date: 20220721
  Serious: No
  Sender: FDA-Public Use
  Company Number: 2021A872722

PATIENT
  Age: 28403 Day
  Sex: Female
  Weight: 86.6 kg

DRUGS (21)
  1. BREZTRI [Suspect]
     Active Substance: BUDESONIDE\FORMOTEROL\GLYCOPYRROLATE
     Indication: Asthma
     Dosage: 160/9/4.8 MCG 1 PUFF TWICE DAILY
     Route: 055
     Dates: start: 20211209, end: 20211213
  2. BREZTRI [Suspect]
     Active Substance: BUDESONIDE\FORMOTEROL\GLYCOPYRROLATE
     Indication: Respiration abnormal
     Dosage: 160/9/4.8 MCG 1 PUFF TWICE DAILY
     Route: 055
     Dates: start: 20211209, end: 20211213
  3. BIOTIN [Concomitant]
     Active Substance: BIOTIN
  4. BUSPAR [Concomitant]
     Active Substance: BUSPIRONE HYDROCHLORIDE
  5. POTASSIUM [Concomitant]
     Active Substance: POTASSIUM
  6. CYANOCOBALAMIN\DEXPANTHENOL\NIACINAMIDE\PYRIDOXINE HYDROCHLORIDE\RIBOF [Concomitant]
     Active Substance: CYANOCOBALAMIN\DEXPANTHENOL\NIACINAMIDE\PYRIDOXINE HYDROCHLORIDE\RIBOFLAVIN 5^-PHOSPHATE SODIUM\THIA
  7. ECOTRIN [Concomitant]
     Active Substance: ASPIRIN
  8. XOPENEX HFA [Concomitant]
     Active Substance: LEVALBUTEROL TARTRATE
  9. PROVONTIL HFA; VENTOLIN HFA [Concomitant]
  10. OS-CAL PLUS D [Concomitant]
  11. XANAX [Concomitant]
     Active Substance: ALPRAZOLAM
  12. VITAMIN C [Concomitant]
     Active Substance: ASCORBIC ACID
  13. REPATHA [Concomitant]
     Active Substance: EVOLOCUMAB
  14. FOLIC ACID/VITAMINS NOS [Concomitant]
  15. PRALUENT [Concomitant]
     Active Substance: ALIROCUMAB
  16. WIXELA INHUB [Concomitant]
     Active Substance: FLUTICASONE PROPIONATE\SALMETEROL XINAFOATE
  17. TOPROL XL [Concomitant]
     Active Substance: METOPROLOL SUCCINATE
  18. SERZONE [Concomitant]
     Active Substance: NEFAZODONE HYDROCHLORIDE
  19. FLONASE [Concomitant]
     Active Substance: FLUTICASONE PROPIONATE
  20. PLAVIX [Concomitant]
     Active Substance: CLOPIDOGREL BISULFATE
  21. SYNTHROID [Concomitant]
     Active Substance: LEVOTHYROXINE SODIUM

REACTIONS (11)
  - Arthralgia [Unknown]
  - Discomfort [Recovering/Resolving]
  - Gait disturbance [Not Recovered/Not Resolved]
  - Joint stiffness [Unknown]
  - Mobility decreased [Recovering/Resolving]
  - Myalgia [Unknown]
  - Pain [Recovering/Resolving]
  - Palpitations [Recovered/Resolved]
  - Muscle spasms [Unknown]
  - Vision blurred [Unknown]
  - Off label use [Unknown]

NARRATIVE: CASE EVENT DATE: 20211209
